FAERS Safety Report 10078766 (Version 2)
Quarter: 2014Q2

REPORT INFORMATION
  Report Type: Spontaneous
  Country: US (occurrence: US)
  Receive Date: 20140415
  Receipt Date: 20140509
  Transmission Date: 20141212
  Serious: Yes (Other)
  Sender: FDA-Public Use
  Company Number: US-PFIZER INC-2014101101

PATIENT
  Sex: Female

DRUGS (2)
  1. PHOSPHOLINE IODIDE [Suspect]
     Indication: GLAUCOMA
     Dosage: UNK (STRENGTH 0.03%)
     Route: 047
  2. PHOSPHOLINE IODIDE [Suspect]
     Dosage: UNK (STRENGTH 0.125%)
     Route: 047

REACTIONS (3)
  - Intraocular pressure increased [Recovered/Resolved]
  - Drug intolerance [Unknown]
  - Wrong technique in drug usage process [Unknown]
